FAERS Safety Report 5615571-7 (Version None)
Quarter: 2008Q1

REPORT INFORMATION
  Report Type: 
  Country: None (occurrence: None)
  Receive Date: 20080205
  Receipt Date: 20080205
  Transmission Date: 20080703
  Serious: Yes (Other)
  Sender: FDA-Public Use
  Company Number: None

PATIENT
  Age: 50 Year
  Sex: Male
  Weight: 106.5953 kg

DRUGS (1)
  1. CHANTIX [Suspect]
     Indication: SMOKING CESSATION THERAPY
     Dosage: PACKAGE
     Dates: start: 20080121, end: 20080130

REACTIONS (9)
  - ANXIETY [None]
  - FEELING ABNORMAL [None]
  - GINGIVAL DISORDER [None]
  - HEADACHE [None]
  - HYPERAESTHESIA [None]
  - SENSATION OF HEAVINESS [None]
  - SENSITIVITY OF TEETH [None]
  - TEMPOROMANDIBULAR JOINT SYNDROME [None]
  - TOOTHACHE [None]
